FAERS Safety Report 12357588 (Version 1)
Quarter: 2016Q2

REPORT INFORMATION
  Report Type: Report from Study
  Country: US (occurrence: US)
  Receive Date: 20160512
  Receipt Date: 20160512
  Transmission Date: 20160815
  Serious: No
  Sender: FDA-Public Use
  Company Number: US-009507513-1605USA005120

PATIENT

DRUGS (4)
  1. ALTEPLASE [Suspect]
     Active Substance: ALTEPLASE
     Dosage: UNK
     Route: 042
  2. EPTIFIBATIDE. [Suspect]
     Active Substance: EPTIFIBATIDE
     Indication: ANTIPLATELET THERAPY
     Dosage: 135-UG/KG SINGLE-DOSE
     Route: 013
  3. EPTIFIBATIDE. [Suspect]
     Active Substance: EPTIFIBATIDE
     Indication: ISCHAEMIC STROKE
     Dosage: 0.5-UG/KG/MIN POST PROCEDURALLY
     Route: 042
  4. ALTEPLASE [Suspect]
     Active Substance: ALTEPLASE
     Indication: ISCHAEMIC STROKE
     Dosage: UNK
     Route: 013

REACTIONS (1)
  - Haematuria [Unknown]
